FAERS Safety Report 11733274 (Version 3)
Quarter: 2017Q2

REPORT INFORMATION
  Report Type: Spontaneous
  Country: US (occurrence: US)
  Receive Date: 20151113
  Receipt Date: 20170420
  Transmission Date: 20170829
  Serious: Yes (Other)
  Sender: FDA-Public Use
  Company Number: US-BIO PRODUCTS LABORATORY LTD-1044147

PATIENT
  Age: 35 Year
  Sex: Female

DRUGS (3)
  1. GAMMAPLEX [Suspect]
     Active Substance: HUMAN IMMUNOGLOBULIN G
     Indication: SENSORY GANGLIONITIS
     Route: 042
  2. SOLU-MEDROL [Concomitant]
     Active Substance: METHYLPREDNISOLONE SODIUM SUCCINATE
  3. RITUXAN [Suspect]
     Active Substance: RITUXIMAB
     Dates: start: 20150801

REACTIONS (2)
  - Neutropenia [Unknown]
  - White blood cell count decreased [Unknown]
